FAERS Safety Report 20892361 (Version 3)
Quarter: 2022Q3

REPORT INFORMATION
  Report Type: Report from Study
  Country: US (occurrence: US)
  Receive Date: 20220530
  Receipt Date: 20220915
  Transmission Date: 20221027
  Serious: Yes (Other)
  Sender: FDA-Public Use
  Company Number: US-BRISTOL-MYERS SQUIBB COMPANY-2022-044286

PATIENT
  Age: 84 Year
  Sex: Male
  Weight: 86.64 kg

DRUGS (2)
  1. POMALYST [Suspect]
     Active Substance: POMALIDOMIDE
     Indication: Plasma cell myeloma
     Dosage: EXPIRY DATE: 28-FEB-2025
     Route: 048
     Dates: start: 20210626
  2. XARELTO [Concomitant]
     Active Substance: RIVAROXABAN
     Indication: Deep vein thrombosis
     Route: 065
     Dates: start: 202009

REACTIONS (4)
  - Bronchitis [Recovered/Resolved]
  - Neuropathy peripheral [Unknown]
  - Back disorder [Unknown]
  - Prescribed underdose [Unknown]
